FAERS Safety Report 7333379-1 (Version None)
Quarter: 2011Q1

REPORT INFORMATION
  Report Type: 
  Country: None (occurrence: None)
  Receive Date: 20110304
  Receipt Date: 20110223
  Transmission Date: 20110831
  Serious: Yes (Other)
  Sender: FDA-Public Use
  Company Number: US-MYLANLABS-2011S1003645

PATIENT
  Age: 18 Year
  Sex: Female

DRUGS (1)
  1. AMNESTEEM [Suspect]
     Indication: ACNE
     Route: 048
     Dates: start: 20110101, end: 20110217

REACTIONS (2)
  - SELF-INJURIOUS IDEATION [None]
  - DEPRESSION [None]
